FAERS Safety Report 25031813 (Version 1)
Quarter: 2025Q1

REPORT INFORMATION
  Report Type: Spontaneous
  Country: FR (occurrence: FR)
  Receive Date: 20250303
  Receipt Date: 20250303
  Transmission Date: 20250409
  Serious: Yes (Other)
  Sender: NOVARTIS
  Company Number: FR-GlaxoSmithKline-B0841821A

PATIENT
  Age: 78 Year
  Sex: Male

DRUGS (2)
  1. LAPATINIB DITOSYLATE [Suspect]
     Active Substance: LAPATINIB DITOSYLATE
     Indication: Transitional cell carcinoma metastatic
     Dosage: 1000 MG, QD
     Route: 048
     Dates: start: 200911
  2. PACLITAXEL [Suspect]
     Active Substance: PACLITAXEL
     Indication: Transitional cell carcinoma metastatic
     Dosage: 80 MG/M2, QW
     Route: 042
     Dates: start: 200911

REACTIONS (2)
  - Diarrhoea [Unknown]
  - Product use in unapproved indication [Unknown]
